FAERS Safety Report 7250664-2 (Version None)
Quarter: 2011Q1

REPORT INFORMATION
  Report Type: 
  Country: None (occurrence: None)
  Receive Date: 20110128
  Receipt Date: 20110120
  Transmission Date: 20110831
  Serious: Yes (Other)
  Sender: FDA-Public Use
  Company Number: CN-JNJFOC-20110106852

PATIENT
  Age: 52 Year
  Sex: Female

DRUGS (6)
  1. RISPERIDONE [Suspect]
     Route: 048
  2. RISPERIDONE [Suspect]
     Route: 048
  3. RISPERIDONE [Suspect]
     Dosage: 1 MG IN THE MORNING AND 0.5 MG AT NIGHT
     Route: 048
  4. RISPERIDONE [Suspect]
     Indication: SCHIZOPHRENIA
     Route: 048
  5. ANTAN [Concomitant]
     Indication: PRODUCT USED FOR UNKNOWN INDICATION
     Route: 048
  6. RISPERIDONE [Suspect]
     Route: 048

REACTIONS (5)
  - JOINT ANKYLOSIS [None]
  - TREATMENT NONCOMPLIANCE [None]
  - MOUTH ULCERATION [None]
  - TREMOR [None]
  - GAIT DISTURBANCE [None]
